FAERS Safety Report 7272114-2 (Version None)
Quarter: 2011Q1

REPORT INFORMATION
  Report Type: 
  Country: None (occurrence: None)
  Receive Date: 20110203
  Receipt Date: 20110128
  Transmission Date: 20110831
  Serious: Yes (Other)
  Sender: FDA-Public Use
  Company Number: GB-PFIZER INC-2011022732

PATIENT
  Sex: Male

DRUGS (1)
  1. SUNITINIB MALATE [Suspect]
     Dosage: 37.5 MG, UNK

REACTIONS (1)
  - BLOOD TRIGLYCERIDES INCREASED [None]
